FAERS Safety Report 7344561-1 (Version None)
Quarter: 2011Q1

REPORT INFORMATION
  Report Type: 
  Country: None (occurrence: None)
  Receive Date: 20110308
  Receipt Date: 20110308
  Transmission Date: 20110831
  Serious: No
  Sender: FDA-Public Use
  Company Number: None

PATIENT

DRUGS (1)
  1. LOVENOX [Suspect]
     Indication: ANTICOAGULANT THERAPY
     Dosage: VARIABEL ONCE - TWICE DAILY SQ
     Route: 058
     Dates: start: 20110110, end: 20110111

REACTIONS (2)
  - INJURY ASSOCIATED WITH DEVICE [None]
  - DEVICE COMPONENT ISSUE [None]
